FAERS Safety Report 18212846 (Version 1)
Quarter: 2020Q3

REPORT INFORMATION
  Report Type: Spontaneous
  Country: FR (occurrence: FR)
  Receive Date: 20200831
  Receipt Date: 20200831
  Transmission Date: 20201103
  Serious: Yes (Hospitalization)
  Sender: FDA-Public Use
  Company Number: FR-TEVA-2020-FR-1821020

PATIENT
  Age: 17 Year
  Sex: Male

DRUGS (4)
  1. BROMAZEPAM [Suspect]
     Active Substance: BROMAZEPAM
     Route: 065
  2. RIVOTRIL [Suspect]
     Active Substance: CLONAZEPAM
     Route: 065
  3. PREGABALINE [Suspect]
     Active Substance: PREGABALIN
     Route: 065
  4. CODEINE [Suspect]
     Active Substance: CODEINE
     Route: 065

REACTIONS (2)
  - Respiratory distress [Recovered/Resolved]
  - Depressed level of consciousness [Recovered/Resolved]
